FAERS Safety Report 5488804-8 (Version None)
Quarter: 2007Q4

REPORT INFORMATION
  Report Type: 
  Country: None (occurrence: None)
  Receive Date: 20071016
  Receipt Date: 20071004
  Transmission Date: 20080405
  Serious: Yes (Hospitalization, Other)
  Sender: FDA-Public Use
  Company Number: 2007US002474

PATIENT
  Age: 27 Year
  Sex: Male

DRUGS (1)
  1. PROGRAF [Suspect]
     Indication: RENAL TRANSPLANT
     Dates: start: 20070601

REACTIONS (3)
  - PYELONEPHRITIS [None]
  - TRANSPLANT REJECTION [None]
  - URINARY TRACT INFECTION [None]
